FAERS Safety Report 7725916-X (Version None)
Quarter: 2011Q3

REPORT INFORMATION
  Report Type: 
  Country: None (occurrence: None)
  Receive Date: 20110902
  Receipt Date: 20110824
  Transmission Date: 20111222
  Serious: Yes (Other)
  Sender: FDA-Public Use
  Company Number: JP-JNJFOC-20101208609

PATIENT
  Sex: Male

DRUGS (5)
  1. PENTASA [Concomitant]
     Indication: CROHN'S DISEASE
     Route: 048
     Dates: start: 20100706
  2. PREDNISONE [Concomitant]
     Indication: CROHN'S DISEASE
     Route: 048
     Dates: start: 20100706, end: 20101012
  3. REMICADE [Suspect]
     Route: 042
     Dates: start: 20100824
  4. REMICADE [Suspect]
     Indication: CROHN'S DISEASE
     Route: 042
     Dates: start: 20101008
  5. REMICADE [Suspect]
     Route: 042
     Dates: start: 20100909

REACTIONS (1)
  - MYELODYSPLASTIC SYNDROME [None]
